FAERS Safety Report 15232467 (Version 1)
Quarter: 2018Q3

REPORT INFORMATION
  Report Type: Spontaneous
  Country: US (occurrence: US)
  Receive Date: 20180802
  Receipt Date: 20180802
  Transmission Date: 20181010
  Serious: Yes (Other)
  Sender: FDA-Public Use
  Company Number: US-PFIZER INC-2018306499

PATIENT
  Age: 8 Decade
  Sex: Male

DRUGS (1)
  1. AMIODARONE HCL [Suspect]
     Active Substance: AMIODARONE HYDROCHLORIDE
     Indication: ATRIAL FIBRILLATION
     Dosage: 200 MG, DAILY (MEAN AMIODARONE DOSE WAS 200 MG DAILY)

REACTIONS (3)
  - Toxic nodular goitre [Unknown]
  - Primary hypogonadism [Unknown]
  - Hyperthyroidism [Unknown]
